FAERS Safety Report 8421949-9 (Version None)
Quarter: 2012Q2

REPORT INFORMATION
  Report Type: 
  Country: None (occurrence: None)
  Receive Date: 20120608
  Receipt Date: 20120525
  Transmission Date: 20120825
  Serious: Yes (Death, Other)
  Sender: FDA-Public Use
  Company Number: GB-BAUSCH-2012BL002494

PATIENT
  Sex: Female
  Weight: 1 kg

DRUGS (6)
  1. CAFFEINE CITRATE [Concomitant]
  2. GENTAMICIN [Concomitant]
  3. CYCLOPENTOLATE HCL [Suspect]
     Indication: OPHTHALMOLOGICAL EXAMINATION
     Route: 047
     Dates: start: 20120329, end: 20120329
  4. PHENYLEPHRINE HYDROCHLORIDE [Suspect]
     Indication: OPHTHALMOLOGICAL EXAMINATION
     Route: 047
     Dates: start: 20120329, end: 20120329
  5. SODIUM CHLORIDE [Concomitant]
  6. PENICILLIN G POTASSIUM [Concomitant]

REACTIONS (5)
  - SEPSIS NEONATAL [None]
  - SYNCOPE [None]
  - OFF LABEL USE [None]
  - NECROTISING COLITIS [None]
  - C-REACTIVE PROTEIN INCREASED [None]
